FAERS Safety Report 9177083 (Version 1)
Quarter: 2013Q1

REPORT INFORMATION
  Report Type: Spontaneous
  Country: US (occurrence: None)
  Receive Date: 20130320
  Receipt Date: 20130320
  Transmission Date: 20140127
  Serious: Yes (Other)
  Sender: FDA-Public Use
  Company Number: None

PATIENT
  Age: 69 Year
  Sex: Male

DRUGS (7)
  1. ENBREL 50 MG AMGEN/PFIZER [Suspect]
     Indication: RHEUMATOID ARTHRITIS
     Route: 058
     Dates: start: 20130128, end: 20130319
  2. ALLOPURINOL [Concomitant]
  3. FINASTERIDE [Concomitant]
  4. CITALOPRAM [Concomitant]
  5. HYDROCHLOROTHIAZIDE [Concomitant]
  6. CYANOCOBALAMIN [Concomitant]
  7. ALFUZOSIN ER [Concomitant]

REACTIONS (1)
  - Leukaemia [None]
